FAERS Safety Report 5296763-6 (Version None)
Quarter: 2007Q2

REPORT INFORMATION
  Report Type: 
  Country: None (occurrence: None)
  Receive Date: 20070413
  Receipt Date: 20070409
  Transmission Date: 20071010
  Serious: Yes (Life-Threatening, Hospitalization)
  Sender: FDA-Public Use
  Company Number: US-MERCK-0704USA01302

PATIENT
  Sex: Female

DRUGS (2)
  1. PEPCID [Suspect]
     Route: 048
     Dates: start: 20041102
  2. REGLAN [Concomitant]
     Route: 065

REACTIONS (1)
  - MYOCARDIAL INFARCTION [None]
